FAERS Safety Report 9019707 (Version 1)
Quarter: 2013Q1

REPORT INFORMATION
  Report Type: Spontaneous
  Country: DE (occurrence: DE)
  Receive Date: 20130118
  Receipt Date: 20130118
  Transmission Date: 20140127
  Serious: Yes (Hospitalization, Other)
  Sender: FDA-Public Use
  Company Number: DE-ROCHE-1180030

PATIENT
  Age: 71 None
  Sex: Female
  Weight: 97 kg

DRUGS (14)
  1. BEVACIZUMAB [Suspect]
     Indication: OVARIAN CANCER
     Route: 042
     Dates: start: 20120905, end: 20121017
  2. PACLITAXEL [Concomitant]
     Indication: OVARIAN CANCER
     Route: 042
     Dates: start: 20120704, end: 20121017
  3. CARBOPLATIN [Concomitant]
     Indication: OVARIAN CANCER
     Route: 042
     Dates: start: 20120704, end: 20121017
  4. PANTOPRAZOL [Concomitant]
     Route: 065
  5. L-THYROXIN [Concomitant]
     Route: 065
  6. MOXONIDIN [Concomitant]
     Route: 065
  7. VALSARTAN [Concomitant]
     Route: 065
  8. BIPERIDEN [Concomitant]
     Route: 065
  9. OLANZAPINE [Concomitant]
     Route: 065
  10. MIANSERIN [Concomitant]
     Route: 065
  11. RESTEX [Concomitant]
  12. SODIUM CHLORIDE [Concomitant]
     Route: 048
  13. MOVICOL [Concomitant]
     Route: 065
  14. LAXANS (GERMANY) [Concomitant]
     Route: 048

REACTIONS (5)
  - Transient ischaemic attack [Recovered/Resolved]
  - Hypertension [Recovered/Resolved]
  - Aphasia [Recovered/Resolved]
  - Facial asymmetry [Recovered/Resolved]
  - Proteinuria [Recovered/Resolved]
